FAERS Safety Report 9004795 (Version 2)
Quarter: 2013Q1

REPORT INFORMATION
  Report Type: Spontaneous
  Country: JP (occurrence: None)
  Receive Date: 20121227
  Receipt Date: 20130104
  Transmission Date: 20140127
  Serious: No
  Sender: FDA-Public Use
  Company Number: SPI201200365

PATIENT
  Age: 58 Year
  Sex: Female

DRUGS (2)
  1. AMITIZA [Suspect]
     Indication: CONSTIPATION
     Route: 048
     Dates: start: 20121208, end: 201212
  2. ALOSENN (ACHILLEA MILLEFOLIUM, RUBIA TINCTORUM ROOT TINCTURE, SEN NA ALEXANDRINA FRUIT, SENNA ALEXANDRINA LEAF TARAXACUM OFFICINALE) [Concomitant]

REACTIONS (3)
  - Dyspnoea [None]
  - Cough [None]
  - Hypersensitivity [None]
